FAERS Safety Report 8238518-6 (Version None)
Quarter: 2012Q1

REPORT INFORMATION
  Report Type: 
  Country: None (occurrence: None)
  Receive Date: 20120327
  Receipt Date: 20120314
  Transmission Date: 20120608
  Serious: Yes (Hospitalization)
  Sender: FDA-Public Use
  Company Number: FR-ROCHE-1049215

PATIENT
  Age: 69 Year
  Sex: Female

DRUGS (8)
  1. ACTEMRA [Suspect]
     Indication: RHEUMATOID ARTHRITIS
     Route: 042
     Dates: start: 20100801, end: 20101101
  2. FERROUS SULFATE TAB [Concomitant]
  3. ACETAMINOPHEN [Concomitant]
  4. ALUMINUM HYDROXIDE AND MAGNESIUM TRISILICATE [Concomitant]
  5. IMODIUM [Concomitant]
  6. ARIXTRA [Concomitant]
  7. PREDNISONE TAB [Concomitant]
  8. MABTHERA [Suspect]
     Indication: RHEUMATOID ARTHRITIS
     Dates: start: 20090101, end: 20100101

REACTIONS (2)
  - CYTOMEGALOVIRUS COLITIS [None]
  - LYMPHOMA [None]
